FAERS Safety Report 9904357 (Version 2)
Quarter: 2014Q1

REPORT INFORMATION
  Report Type: Spontaneous
  Country: US (occurrence: US)
  Receive Date: 20140218
  Receipt Date: 20140328
  Transmission Date: 20141002
  Serious: No
  Sender: FDA-Public Use
  Company Number: US-PFIZER INC-2014043132

PATIENT
  Age: 71 Year
  Sex: Female
  Weight: 56.2 kg

DRUGS (1)
  1. EXEMESTANE [Suspect]
     Indication: BREAST CANCER STAGE I
     Dosage: 25 MG, DAILY
     Route: 048
     Dates: start: 20120718, end: 20120920

REACTIONS (2)
  - Balance disorder [Recovered/Resolved]
  - Arthralgia [Recovered/Resolved]
